FAERS Safety Report 10977216 (Version 1)
Quarter: 2015Q2

REPORT INFORMATION
  Report Type: Report from Study
  Country: CA (occurrence: CA)
  Receive Date: 20150402
  Receipt Date: 20150402
  Transmission Date: 20150821
  Serious: Yes (Other)
  Sender: FDA-Public Use
  Company Number: CA-ROCHE-1289423

PATIENT
  Age: 73 Year
  Sex: Female
  Weight: 90.3 kg

DRUGS (17)
  1. ROSUVASTATIN [Concomitant]
     Active Substance: ROSUVASTATIN
  2. ENBREL [Concomitant]
     Active Substance: ETANERCEPT
  3. ACETAMINOPHEN. [Concomitant]
     Active Substance: ACETAMINOPHEN
     Indication: PREMEDICATION
     Route: 048
     Dates: start: 20130917
  4. LACTULOSE. [Concomitant]
     Active Substance: LACTULOSE
  5. LANSOPRAZOLE. [Concomitant]
     Active Substance: LANSOPRAZOLE
  6. METHOTREXATE [Concomitant]
     Active Substance: METHOTREXATE
  7. ACLASTA [Concomitant]
     Active Substance: ZOLEDRONIC ACID
  8. AMLODIPINE [Concomitant]
     Active Substance: AMLODIPINE BESYLATE
  9. RITUXAN [Suspect]
     Active Substance: RITUXIMAB
     Indication: RHEUMATOID ARTHRITIS
     Route: 042
     Dates: start: 20130917
  10. PLAVIX [Concomitant]
     Active Substance: CLOPIDOGREL BISULFATE
  11. FERROUS SULFATE [Concomitant]
     Active Substance: FERROUS SULFATE\FERROUS SULFATE, DRIED
  12. PLAQUENIL [Suspect]
     Active Substance: HYDROXYCHLOROQUINE SULFATE
     Indication: RHEUMATOID ARTHRITIS
     Route: 065
  13. METHYLPREDNISOLONE. [Concomitant]
     Active Substance: METHYLPREDNISOLONE
     Indication: PREMEDICATION
     Route: 042
     Dates: start: 20130917
  14. FOLIC ACID. [Concomitant]
     Active Substance: FOLIC ACID
  15. RAMIPRIL. [Concomitant]
     Active Substance: RAMIPRIL
  16. PREDNISONE. [Concomitant]
     Active Substance: PREDNISONE
     Dosage: DECREASED DOSED OF PREDNISONE FROM 7.5MG DAILY TO 5MG DAILY ON OCT 2.
     Route: 065
  17. TYLENOL ARTHRITIS PAIN [Concomitant]
     Active Substance: ACETAMINOPHEN

REACTIONS (4)
  - Eye disorder [Unknown]
  - Gastrointestinal carcinoma [Recovered/Resolved]
  - Nasopharyngitis [Not Recovered/Not Resolved]
  - Lung infection [Recovering/Resolving]

NARRATIVE: CASE EVENT DATE: 20131008
